FAERS Safety Report 6525542-4 (Version None)
Quarter: 2009Q4

REPORT INFORMATION
  Report Type: 
  Country: None (occurrence: None)
  Receive Date: 20091228
  Receipt Date: 20091209
  Transmission Date: 20100525
  Serious: Yes (Hospitalization, Other)
  Sender: FDA-Public Use
  Company Number: 2009-04459

PATIENT
  Age: 64 Year
  Sex: Female
  Weight: 75 kg

DRUGS (3)
  1. VELCADE [Suspect]
     Indication: MULTIPLE MYELOMA
     Dosage: 1.2 MG/M2, INTRAVENOUS
     Route: 042
     Dates: start: 20090828, end: 20091109
  2. ADRIAMYCIN PFS [Concomitant]
  3. DEXAMETHASONE TAB [Concomitant]

REACTIONS (7)
  - DEHYDRATION [None]
  - DRUG TOXICITY [None]
  - METASTASES TO MENINGES [None]
  - MYELITIS [None]
  - NEUROPATHY PERIPHERAL [None]
  - PARAPARESIS [None]
  - PARESIS [None]
